FAERS Safety Report 20296693 (Version 1)
Quarter: 2022Q1

REPORT INFORMATION
  Report Type: Spontaneous
  Country: US (occurrence: None)
  Receive Date: 20220105
  Receipt Date: 20220105
  Transmission Date: 20220423
  Serious: No
  Sender: FDA-Public Use
  Company Number: US-ROCHE-2839107

PATIENT
  Age: 14 Year
  Sex: Male

DRUGS (4)
  1. HEMLIBRA [Suspect]
     Active Substance: EMICIZUMAB-KXWH
     Indication: Factor VIII deficiency
     Dosage: 150 MG/ ML
     Route: 058
     Dates: start: 20210520
  2. HEMLIBRA [Suspect]
     Active Substance: EMICIZUMAB-KXWH
     Indication: Haemophilia
     Dosage: DOSAGE STRENGTH: 105 MG/.7 ML
     Route: 058
     Dates: start: 20191104
  3. HEMLIBRA [Suspect]
     Active Substance: EMICIZUMAB-KXWH
     Dosage: DOSAGE STRENGTH: 60MG/0.4 ML
     Route: 058
     Dates: start: 20191104
  4. ADVATE [Concomitant]
     Active Substance: ANTIHEMOPHILIC FACTOR, HUMAN RECOMBINANT

REACTIONS (1)
  - Tooth extraction [Unknown]

NARRATIVE: CASE EVENT DATE: 20210520
